FAERS Safety Report 16132687 (Version 1)
Quarter: 2019Q1

REPORT INFORMATION
  Report Type: Spontaneous
  Country: KR (occurrence: KR)
  Receive Date: 20190329
  Receipt Date: 20190329
  Transmission Date: 20190418
  Serious: Yes (Hospitalization)
  Sender: FDA-Public Use
  Company Number: KR-SA-2019SA079624

PATIENT
  Age: 71 Year
  Sex: Female
  Weight: 50 kg

DRUGS (32)
  1. AMIODARONE HYDROCHLORIDE. [Concomitant]
     Active Substance: AMIODARONE HYDROCHLORIDE
     Indication: CARDIAC DISORDER
     Dosage: 900 ML, UNK
     Route: 042
     Dates: start: 20180723
  2. FENTANYL CITRATE. [Concomitant]
     Active Substance: FENTANYL CITRATE
     Indication: ANALGESIC THERAPY
     Dosage: 2 ML, QD
     Route: 042
     Dates: start: 20180724
  3. VALSARTAN. [Concomitant]
     Active Substance: VALSARTAN
     Indication: HYPERTENSION
     Dosage: UNK
     Route: 048
     Dates: start: 20180725
  4. NICARDIPINE HYDROCHLORIDE. [Concomitant]
     Active Substance: NICARDIPINE HYDROCHLORIDE
     Indication: HYPERTENSION
     Dosage: 3 MG, QD
     Route: 042
     Dates: start: 20180726
  5. HYDROCORTISONE SODIUM [Concomitant]
     Active Substance: HYDROCORTISONE SODIUM SUCCINATE
     Dosage: 400 MG, QD
     Route: 042
     Dates: start: 20180731
  6. MIDAZOLAM [Concomitant]
     Active Substance: MIDAZOLAM HYDROCHLORIDE
     Indication: SEDATIVE THERAPY
     Dosage: 5 MG, QD
     Route: 042
     Dates: start: 20180802
  7. ACETYLCYSTEINE. [Concomitant]
     Active Substance: ACETYLCYSTEINE
     Indication: COUGH
     Dosage: 16 ML, QD
     Route: 042
     Dates: start: 20180723
  8. HYDROXYCHLOROQUINE SULFATE. [Concomitant]
     Active Substance: HYDROXYCHLOROQUINE SULFATE
     Indication: RHEUMATOID ARTHRITIS
     Dosage: UNK
     Route: 048
     Dates: start: 20180724
  9. METHYLPREDNISOLONE. [Concomitant]
     Active Substance: METHYLPREDNISOLONE
     Dosage: 4 MG, QD
     Route: 048
     Dates: start: 20180724
  10. LORAZEPAM. [Concomitant]
     Active Substance: LORAZEPAM
     Indication: ANXIETY
     Dosage: 0.5 ML, QD
     Route: 042
     Dates: start: 20180727
  11. REMIFENTANIL HYDROCHLORIDE. [Concomitant]
     Active Substance: REMIFENTANIL HYDROCHLORIDE
     Indication: ANALGESIC THERAPY
     Dosage: UNK UNK, QD
     Route: 042
     Dates: start: 20180727
  12. NOREPINEPHRINE TARTRATE [Concomitant]
     Dosage: UNK
     Route: 042
     Dates: start: 20180727, end: 20180817
  13. DEXMEDETOMIDINE HYDROCHLORIDE. [Concomitant]
     Active Substance: DEXMEDETOMIDINE HYDROCHLORIDE
     Indication: SEDATIVE THERAPY
     Dosage: 2 ML, QD
     Route: 042
     Dates: start: 20180724
  14. AMLODIPINE BESYLATE. [Concomitant]
     Active Substance: AMLODIPINE BESYLATE
     Indication: HYPERTENSION
     Dosage: UNK
     Route: 048
     Dates: start: 20180727
  15. INSULIN ASPART [Concomitant]
     Active Substance: INSULIN ASPART
     Indication: BLOOD INSULIN
     Dosage: UNK
     Route: 042
     Dates: start: 20180726
  16. FUROSEMIDE. [Concomitant]
     Active Substance: FUROSEMIDE
     Dosage: UNK
     Dates: start: 20180723, end: 20181109
  17. TETRACOSACTIDE [Concomitant]
     Active Substance: COSYNTROPIN
     Dosage: 1 ML, QD
     Route: 042
     Dates: start: 20180724
  18. TORASEMIDE [Concomitant]
     Active Substance: TORSEMIDE
     Dosage: UNK
     Route: 048
     Dates: start: 20180725
  19. MELATONIN [Concomitant]
     Active Substance: MELATONIN
     Indication: SEDATIVE THERAPY
     Dosage: 2 MG, QD
     Route: 048
     Dates: start: 20180726
  20. MAGNESIUM SULFATE. [Concomitant]
     Active Substance: MAGNESIUM SULFATE
     Indication: MUSCLE SPASMS
     Dosage: 20 ML, QD
     Route: 042
     Dates: start: 20180726
  21. CLEXANE [Suspect]
     Active Substance: ENOXAPARIN SODIUM
     Indication: ANTICOAGULANT THERAPY
     Dosage: 50 MG, BID
     Route: 058
     Dates: start: 20180723, end: 20180727
  22. ACETYLCYSTEINE. [Concomitant]
     Active Substance: ACETYLCYSTEINE
     Indication: NASOPHARYNGITIS
  23. POTASSIUM CHLORIDE. [Concomitant]
     Active Substance: POTASSIUM CHLORIDE
     Dosage: 20 ML, QD
     Route: 042
     Dates: start: 20180726
  24. CARVEDILOL. [Concomitant]
     Active Substance: CARVEDILOL
     Indication: HYPERTENSION
     Dosage: 6.25 MG, QD
     Route: 048
     Dates: start: 20180726
  25. OLMESARTAN MEDOXOMIL. [Concomitant]
     Active Substance: OLMESARTAN MEDOXOMIL
     Indication: HYPERTENSION
     Dosage: 20 MG, QD
     Route: 048
     Dates: start: 20180727
  26. SODIUM BICARBONATE. [Concomitant]
     Active Substance: SODIUM BICARBONATE
     Dosage: 100 ML, QD
     Route: 042
     Dates: start: 20180801
  27. LECANIDIPINE [Concomitant]
     Indication: HYPERTENSION
     Dosage: UNK
     Route: 048
     Dates: start: 20180804
  28. ESOMEPRAZOLE SODIUM. [Concomitant]
     Active Substance: ESOMEPRAZOLE SODIUM
     Indication: ANTACID THERAPY
     Dosage: 42.5 MG, QD
     Route: 042
     Dates: start: 20180723, end: 20180817
  29. SPIRONOLACTONE. [Concomitant]
     Active Substance: SPIRONOLACTONE
     Indication: DIURETIC THERAPY
     Dosage: UNK
     Route: 048
     Dates: start: 20180725
  30. ESMOLOL HYDROCHLORIDE. [Concomitant]
     Active Substance: ESMOLOL HYDROCHLORIDE
     Indication: ARRHYTHMIA
     Dosage: 0.5 ML, QD
     Route: 042
     Dates: start: 20180804
  31. WARFARIN SODIUM. [Suspect]
     Active Substance: WARFARIN SODIUM
     Indication: ANTICOAGULANT THERAPY
     Dosage: 1-4 MG, QD
     Route: 048
     Dates: start: 20180724, end: 20180814
  32. ESOMEPRAZOLE MAGNESIUM TRIHYDRATE [Concomitant]
     Active Substance: ESOMEPRAZOLE MAGNESIUM
     Indication: ANTACID THERAPY
     Dosage: 30 MG, QD
     Route: 048
     Dates: start: 20180726

REACTIONS (1)
  - Sepsis [Recovered/Resolved]

NARRATIVE: CASE EVENT DATE: 20180817
